FAERS Safety Report 11741978 (Version 1)
Quarter: 2015Q4

REPORT INFORMATION
  Report Type: Spontaneous
  Country: US (occurrence: None)
  Receive Date: 20151113
  Receipt Date: 20151113
  Transmission Date: 20160304
  Serious: No
  Sender: FDA-Public Use
  Company Number: None

PATIENT
  Age: 45 Year
  Sex: Female
  Weight: 81.65 kg

DRUGS (10)
  1. NORFLEX [Concomitant]
     Active Substance: ORPHENADRINE CITRATE
  2. MV [Concomitant]
  3. AMLODIPINE [Concomitant]
     Active Substance: AMLODIPINE BESYLATE
  4. BUPROPRION [Concomitant]
     Active Substance: BUPROPION
  5. LEVOTHYROXINE. [Concomitant]
     Active Substance: LEVOTHYROXINE
  6. FLUOXETINE [Concomitant]
     Active Substance: FLUOXETINE HYDROCHLORIDE
  7. VIT. D [Concomitant]
  8. LYRICA [Suspect]
     Active Substance: PREGABALIN
     Indication: FIBROMYALGIA
     Dosage: 2 PILLS
     Route: 048
  9. CLARITIN [Concomitant]
     Active Substance: LORATADINE
  10. FLONASE [Concomitant]
     Active Substance: FLUTICASONE PROPIONATE

REACTIONS (6)
  - Pain [None]
  - Tremor [None]
  - Muscle spasms [None]
  - Dyskinesia [None]
  - Dysstasia [None]
  - Nausea [None]

NARRATIVE: CASE EVENT DATE: 20151102
